FAERS Safety Report 6567333-4 (Version None)
Quarter: 2010Q1

REPORT INFORMATION
  Report Type: 
  Country: None (occurrence: None)
  Receive Date: 20100202
  Receipt Date: 20100120
  Transmission Date: 20100710
  Serious: Yes (Other)
  Sender: FDA-Public Use
  Company Number: PHHY2010US03055

PATIENT
  Sex: Female

DRUGS (11)
  1. XOLAIR [Suspect]
     Dosage: 3 SHOTS TWICE A MONTH
     Dates: start: 20080701
  2. RITALIN [Suspect]
  3. THYROID TAB [Concomitant]
  4. PROGESTERONE [Concomitant]
  5. ESTROGEN NOS [Concomitant]
  6. TESTOSTERONE [Concomitant]
  7. ALLEGRA [Concomitant]
  8. PROZAC [Concomitant]
  9. NEXIUM [Concomitant]
  10. SIMVASTATIN [Concomitant]
  11. NEURONTIN [Concomitant]

REACTIONS (1)
  - FATIGUE [None]
